FAERS Safety Report 4503061-4 (Version None)
Quarter: 2004Q4

REPORT INFORMATION
  Report Type: 
  Country: None (occurrence: None)
  Receive Date: 20041116
  Receipt Date: 20041116
  Transmission Date: 20050328
  Serious: Yes (Life-Threatening)
  Sender: FDA-Public Use
  Company Number: None

PATIENT
  Age: 64 Year
  Sex: Male
  Weight: 78.0187 kg

DRUGS (4)
  1. ERBITUX (CETUXIMAB) [Suspect]
     Indication: COLON CANCER METASTATIC
     Dosage: 700 MG IV X 1
     Route: 042
     Dates: start: 20040629
  2. ERBITUX (CETUXIMAB) [Suspect]
  3. BENADRYL [Concomitant]
  4. TYLENOL (CAPLET) [Concomitant]

REACTIONS (5)
  - ANGIONEUROTIC OEDEMA [None]
  - BLOOD PRESSURE DECREASED [None]
  - HYPOTENSION [None]
  - INFUSION RELATED REACTION [None]
  - PRURITUS [None]
